FAERS Safety Report 16964381 (Version 2)
Quarter: 2019Q4

REPORT INFORMATION
  Report Type: Report from Study
  Country: CA (occurrence: CA)
  Receive Date: 20191027
  Receipt Date: 20191129
  Transmission Date: 20200122
  Serious: Yes (Other)
  Sender: FDA-Public Use
  Company Number: CA-BIOGEN-2019BI00799676

PATIENT
  Age: 64 Year
  Sex: Female

DRUGS (2)
  1. TYSABRI [Suspect]
     Active Substance: NATALIZUMAB
     Indication: MULTIPLE SCLEROSIS
     Dosage: INFUSED FOR OVER 1 HRS
     Route: 042
     Dates: start: 20120515
  2. TYSABRI [Suspect]
     Active Substance: NATALIZUMAB
     Route: 042

REACTIONS (4)
  - Prescribed underdose [Unknown]
  - Memory impairment [Unknown]
  - Confusional state [Recovered/Resolved]
  - Epilepsy [Not Recovered/Not Resolved]

NARRATIVE: CASE EVENT DATE: 20120515
